FAERS Safety Report 17661579 (Version 1)
Quarter: 2020Q2

REPORT INFORMATION
  Report Type: Spontaneous
  Country: US (occurrence: US)
  Receive Date: 20200413
  Receipt Date: 20200413
  Transmission Date: 20200713
  Serious: No
  Sender: FDA-Public Use
  Company Number: None

PATIENT
  Age: 67 Year
  Sex: Male
  Weight: 123.48 kg

DRUGS (15)
  1. PROCHLORPERAZINE 10MG, ORAL [Concomitant]
  2. VITAMIN C ER 1000 MCG, ORAL [Concomitant]
  3. LOPERAMIDE 2MG, ORAL [Concomitant]
  4. CAPECITABINE. [Suspect]
     Active Substance: CAPECITABINE
     Indication: RECTAL CANCER
     Route: 048
     Dates: start: 20190509, end: 20200413
  5. LOMOTIL 2.5 - 0.025MG ,ORAL [Concomitant]
  6. LISINOPRIL, ORAL [Concomitant]
  7. SILVER SULFADIAZINE 1% CREAM, EXTERNAL [Concomitant]
  8. VITAMIN B COMPLEX, ORAL [Concomitant]
  9. BUMETANIDE 0.5MG, ORAL [Concomitant]
  10. VITAMIN D, 1000 U, ORAL [Concomitant]
  11. MULTIPLE VITAMIN , ORAL [Concomitant]
  12. ASPIRIN 81MG, ORAL [Concomitant]
  13. POTASSIUM CHLORIDE,ORAL [Concomitant]
  14. CARVEDILOL 3.125MG, ORAL [Concomitant]
  15. WARFARIN 5MG, ORAL [Concomitant]

REACTIONS (2)
  - Oedema [None]
  - Mouth ulceration [None]

NARRATIVE: CASE EVENT DATE: 20200413
